FAERS Safety Report 9067151 (Version 2)
Quarter: 2013Q1

REPORT INFORMATION
  Report Type: Spontaneous
  Country: US (occurrence: US)
  Receive Date: 20130214
  Receipt Date: 20130311
  Transmission Date: 20140127
  Serious: No
  Sender: FDA-Public Use
  Company Number: PHEH2013US003571

PATIENT
  Sex: Male
  Weight: 93.88 kg

DRUGS (7)
  1. TASIGNA [Suspect]
     Indication: CHRONIC MYELOID LEUKAEMIA
     Dosage: 300 MG, BID
     Route: 048
  2. OMEPRAZOLE [Concomitant]
  3. AMLODIPINE/BENAZEPRIL [Concomitant]
  4. METOPROLOL [Concomitant]
  5. ZANTAC [Concomitant]
  6. HYDROCODONE/APAP [Concomitant]
  7. ASPIRIN [Concomitant]

REACTIONS (1)
  - Drug ineffective [Unknown]
